FAERS Safety Report 6737955-6 (Version None)
Quarter: 2010Q2

REPORT INFORMATION
  Report Type: 
  Country: None (occurrence: None)
  Receive Date: 20100524
  Receipt Date: 20100309
  Transmission Date: 20101027
  Serious: No
  Sender: FDA-Public Use
  Company Number: A0849184A

PATIENT
  Sex: Male

DRUGS (2)
  1. ARZERRA [Suspect]
     Dosage: 300MG SINGLE DOSE
     Route: 042
     Dates: start: 20100302
  2. UNKNOWN [Concomitant]

REACTIONS (1)
  - RASH [None]
